FAERS Safety Report 10269612 (Version 1)
Quarter: 2014Q2

REPORT INFORMATION
  Report Type: Spontaneous
  Country: US (occurrence: None)
  Receive Date: 20140606
  Receipt Date: 20140606
  Transmission Date: 20141212
  Serious: Yes (Death, Other)
  Sender: FDA-Public Use
  Company Number: 003-180

PATIENT
  Age: 50 Year
  Sex: Male

DRUGS (2)
  1. CROFAB (BTG INTERNATIONAL, INC) [Suspect]
     Indication: SNAKE BITE
     Dosage: 30 VIALS TOTAL
     Dates: start: 20030516, end: 20030518
  2. ASPIRIN [Concomitant]

REACTIONS (9)
  - Dysarthria [None]
  - VIIth nerve paralysis [None]
  - Hemiparesis [None]
  - Cerebral infarction [None]
  - Haematuria [None]
  - Brain oedema [None]
  - Intracardiac thrombus [None]
  - Pulmonary congestion [None]
  - Pulmonary embolism [None]
